FAERS Safety Report 8322682-4 (Version None)
Quarter: 2012Q2

REPORT INFORMATION
  Report Type: 
  Country: None (occurrence: None)
  Receive Date: 20120426
  Receipt Date: 20120419
  Transmission Date: 20120825
  Serious: No
  Sender: FDA-Public Use
  Company Number: 217159

PATIENT
  Age: 50 Year
  Sex: Female

DRUGS (7)
  1. ESTROGEN (ESTROGEN NOS) (TABLET) [Concomitant]
  2. VECTICAL [Suspect]
     Indication: PSORIASIS
     Route: 061
     Dates: start: 20100928, end: 20120125
  3. CALCIPOTRIENE AND BETAMETHASONE DIPROPIONATE [Suspect]
     Indication: PSORIASIS
     Dosage: (1 IN 1 D), TOPICAL
     Route: 061
     Dates: start: 20111111, end: 20111220
  4. CALCIPOTRIENE AND BETAMETHASONE DIPROPIONATE [Suspect]
     Indication: PSORIASIS
     Dosage: (1 IN 1 D), TOPICAL
     Route: 061
     Dates: start: 20120214
  5. CALCIPOTRIENE AND BETAMETHASONE DIPROPIONATE [Suspect]
     Indication: PSORIASIS
     Dosage: (1 IN 1 D), TOPICAL
     Route: 061
     Dates: start: 20120114, end: 20120202
  6. CALCIPOTRIENE AND BETAMETHASONE DIPROPIONATE [Suspect]
     Indication: PSORIASIS
     Dosage: (1 IN 1 D), TOPICAL
     Route: 061
  7. PROGESTERONE [Concomitant]

REACTIONS (2)
  - WEIGHT DECREASED [None]
  - DIARRHOEA [None]
